FAERS Safety Report 24524630 (Version 1)
Quarter: 2024Q4

REPORT INFORMATION
  Report Type: Spontaneous
  Country: RO (occurrence: RO)
  Receive Date: 20241019
  Receipt Date: 20241019
  Transmission Date: 20250114
  Serious: Yes (Other)
  Sender: CELLTRION
  Company Number: RO-ROCHE-3535117

PATIENT

DRUGS (5)
  1. TRASTUZUMAB [Suspect]
     Active Substance: TRASTUZUMAB
     Indication: Breast neoplasm
     Dosage: TRASTUZUMAB 8 MG/KG BW AND PERTUZUMAB 840 MG LOADING DOSES, THEN TRASTUZUMAB 6 MG/KG BW AND PERTUZUM
     Route: 042
     Dates: start: 202206, end: 202210
  2. LETROZOLE [Suspect]
     Active Substance: LETROZOLE
     Indication: Breast neoplasm
     Route: 065
  3. PERTUZUMAB [Suspect]
     Active Substance: PERTUZUMAB
     Indication: Breast neoplasm
     Dosage: TRASTUZUMAB 8 MG/KG BW AND PERTUZUMAB 840 MG LOADING DOSES, THEN TRASTUZUMAB 6 MG/KG BW AND PERTUZUM
     Route: 065
     Dates: start: 202206, end: 202210
  4. CARBOPLATIN [Suspect]
     Active Substance: CARBOPLATIN
     Indication: Breast neoplasm
     Route: 065
  5. DOCETAXEL [Suspect]
     Active Substance: DOCETAXEL
     Indication: Breast neoplasm
     Dosage: 75 MG
     Route: 065

REACTIONS (4)
  - Tumour invasion [Unknown]
  - Pulmonary fibrosis [Unknown]
  - Nodule [Unknown]
  - Pulmonary mass [Unknown]
